FAERS Safety Report 6510533-X (Version None)
Quarter: 2009Q4

REPORT INFORMATION
  Report Type: 
  Country: None (occurrence: None)
  Receive Date: 20091221
  Receipt Date: 20091221
  Transmission Date: 20100525
  Serious: Yes (Hospitalization)
  Sender: FDA-Public Use
  Company Number: None

PATIENT
  Age: 73 Year
  Sex: Male
  Weight: 119.0239 kg

DRUGS (12)
  1. SILDENAFIL/PLACEBO 20 MG PFIZER [Suspect]
     Indication: CARDIAC FAILURE CONGESTIVE
     Dosage: 20 MG TID PO
     Route: 048
     Dates: start: 20090812, end: 20091111
  2. SILDENAFIL/PLACEB 60 MG PFIZER [Suspect]
     Dosage: 60 MG TID PO
     Route: 048
     Dates: start: 20091112, end: 20091204
  3. AMLODIPINE [Concomitant]
  4. FUROSEMIDE [Concomitant]
  5. METOPROLOL TARTRATE [Concomitant]
  6. MINOXIDIL [Concomitant]
  7. HYDRALAZINE HCL [Concomitant]
  8. GLIPIZIDE [Concomitant]
  9. SITAGLIPTIN PHOSPHATE [Concomitant]
  10. SIMVASTATIN [Concomitant]
  11. ASPIRIN [Concomitant]
  12. FERROUS GLUCONATE [Concomitant]

REACTIONS (6)
  - CARDIAC FAILURE CONGESTIVE [None]
  - DYSPNOEA EXERTIONAL [None]
  - FLUID OVERLOAD [None]
  - SCROTAL OEDEMA [None]
  - VENOUS PRESSURE JUGULAR INCREASED [None]
  - WEIGHT INCREASED [None]
